FAERS Safety Report 12715320 (Version 2)
Quarter: 2016Q3

REPORT INFORMATION
  Report Type: Spontaneous
  Country: IT (occurrence: IT)
  Receive Date: 20160906
  Receipt Date: 20160906
  Transmission Date: 20161109
  Serious: Yes (Hospitalization)
  Sender: FDA-Public Use
  Company Number: IT-ROCHE-1822135

PATIENT
  Age: 42 Year
  Sex: Female

DRUGS (4)
  1. RIVOTRIL [Suspect]
     Active Substance: CLONAZEPAM
     Indication: BORDERLINE PERSONALITY DISORDER
     Dosage: ^0.5 MG TABLETS^ 20 TABLETS
     Route: 048
     Dates: start: 20160530, end: 20160530
  2. EN [Suspect]
     Active Substance: DELORAZEPAM
     Indication: BORDERLINE PERSONALITY DISORDER
     Route: 048
     Dates: start: 20160530, end: 20160530
  3. TAVOR (LORAZEPAM) [Suspect]
     Active Substance: LORAZEPAM
     Indication: BORDERLINE PERSONALITY DISORDER
     Dosage: ^2.5 MG TABLETS^ 20 TABLETS
     Route: 048
     Dates: start: 20160530, end: 20160530
  4. VALDORM [Suspect]
     Active Substance: VALERIAN
     Indication: BORDERLINE PERSONALITY DISORDER
     Dosage: ^30 MG CAPSULES^ 30 CAPSULES
     Route: 048
     Dates: start: 20160530, end: 20160530

REACTIONS (4)
  - Sopor [Recovering/Resolving]
  - Suicide attempt [Unknown]
  - Benzodiazepine drug level [Recovering/Resolving]
  - Drug abuse [Unknown]

NARRATIVE: CASE EVENT DATE: 20160530
